FAERS Safety Report 8261897-0 (Version None)
Quarter: 2012Q2

REPORT INFORMATION
  Report Type: 
  Country: None (occurrence: None)
  Receive Date: 20120402
  Receipt Date: 20120323
  Transmission Date: 20120825
  Serious: Yes (Hospitalization)
  Sender: FDA-Public Use
  Company Number: 2012SP016256

PATIENT
  Age: 28 Year
  Sex: Male

DRUGS (3)
  1. INDOMETHACIN [Suspect]
     Indication: PRODUCT USED FOR UNKNOWN INDICATION
     Dosage: 2 GM;ONCE;PO
     Route: 048
     Dates: start: 20110314, end: 20110314
  2. REMERON [Suspect]
     Indication: PRODUCT USED FOR UNKNOWN INDICATION
     Dosage: ONCE;PO
     Route: 048
     Dates: start: 20110314, end: 20110314
  3. VENLAFAXINE [Suspect]
     Indication: PRODUCT USED FOR UNKNOWN INDICATION
     Dosage: ONCE;PO
     Route: 048
     Dates: start: 20110314, end: 20110314

REACTIONS (8)
  - BLOOD CREATINE PHOSPHOKINASE INCREASED [None]
  - MYOCLONUS [None]
  - POISONING [None]
  - TREMOR [None]
  - MYDRIASIS [None]
  - HYPERHIDROSIS [None]
  - HALLUCINATION, AUDITORY [None]
  - INTENTIONAL DRUG MISUSE [None]
